FAERS Safety Report 10075383 (Version 1)
Quarter: 2014Q2

REPORT INFORMATION
  Report Type: Spontaneous
  Country: JP (occurrence: JP)
  Receive Date: 20140414
  Receipt Date: 20140414
  Transmission Date: 20141212
  Serious: Yes (Hospitalization)
  Sender: FDA-Public Use
  Company Number: JP-AMGEN-JPNSP2014025528

PATIENT
  Age: 81 Year
  Sex: Female

DRUGS (3)
  1. PRALIA [Suspect]
     Indication: OSTEOPOROSIS
     Dosage: 60 MG, UNK
     Route: 058
     Dates: start: 20140315
  2. DENOTAS [Suspect]
     Indication: HYPOCALCAEMIA
     Dosage: 2 UNK, UNK
     Route: 048
     Dates: start: 20140315
  3. CRESTOR [Concomitant]
     Dosage: UNK

REACTIONS (1)
  - Spinal compression fracture [Unknown]
